FAERS Safety Report 7498324-7 (Version None)
Quarter: 2011Q2

REPORT INFORMATION
  Report Type: 
  Country: None (occurrence: None)
  Receive Date: 20110524
  Receipt Date: 20101227
  Transmission Date: 20111010
  Serious: Yes (Hospitalization, Other)
  Sender: FDA-Public Use
  Company Number: US-BAYER-201012015NA

PATIENT
  Age: 17 Year
  Sex: Female
  Weight: 105 kg

DRUGS (11)
  1. YASMIN [Suspect]
     Indication: EMOTIONAL DISORDER
  2. YASMIN [Suspect]
     Indication: ACNE
     Route: 048
     Dates: start: 20060801, end: 20100301
  3. IBUPROFEN [Concomitant]
  4. GLUCOPHAGE [Concomitant]
     Indication: WEIGHT DECREASED
     Dates: start: 20070801, end: 20080501
  5. DROSPIRENONE AND ETHINYL ESTRADIOL [Suspect]
     Indication: ACNE
     Route: 048
     Dates: start: 20060801, end: 20100301
  6. LISINOPRIL [Concomitant]
     Dosage: 10 MG, QD
  7. YAZ [Suspect]
     Indication: ACNE
     Route: 048
     Dates: start: 20060801, end: 20100301
  8. YAZ [Suspect]
     Indication: EMOTIONAL DISORDER
  9. HYDROCHLOROTHIAZIDE [Concomitant]
     Dosage: 12.5 MG, QD
  10. BACTRIM DS [Concomitant]
     Indication: URINARY TRACT INFECTION
     Dosage: UNK UNK, QD
  11. DROSPIRENONE AND ETHINYL ESTRADIOL [Suspect]
     Indication: EMOTIONAL DISORDER

REACTIONS (5)
  - ABDOMINAL PAIN UPPER [None]
  - PANCREATITIS [None]
  - CHOLELITHIASIS [None]
  - CHOLECYSTITIS [None]
  - GASTRIC DISORDER [None]
